FAERS Safety Report 16121333 (Version 3)
Quarter: 2020Q2

REPORT INFORMATION
  Report Type: Spontaneous
  Country: US (occurrence: US)
  Receive Date: 20190327
  Receipt Date: 20200608
  Transmission Date: 20200713
  Serious: No
  Sender: FDA-Public Use
  Company Number: US-PHARMING-PHAUS2019000193

PATIENT

DRUGS (1)
  1. RUCONEST [Suspect]
     Active Substance: HUMAN C1-ESTERASE INHIBITOR
     Indication: HEREDITARY ANGIOEDEMA
     Dosage: 3500 IU, PRESCRIBED AS NEEDED, BUT USING PROPHYLACTICALLY EVERY 7-14 DAYS
     Route: 042
     Dates: start: 20180226

REACTIONS (1)
  - Product use in unapproved indication [Unknown]
